FAERS Safety Report 22174703 (Version 7)
Quarter: 2023Q4

REPORT INFORMATION
  Report Type: Report from Study
  Country: US (occurrence: US)
  Receive Date: 20230405
  Receipt Date: 20231023
  Transmission Date: 20240110
  Serious: Yes (Hospitalization)
  Sender: FDA-Public Use
  Company Number: US-ABBVIE-4335338

PATIENT
  Sex: Female

DRUGS (3)
  1. SKYRIZI [Suspect]
     Active Substance: RISANKIZUMAB-RZAA
     Indication: Crohn^s disease
     Route: 058
     Dates: start: 2023
  2. SKYRIZI [Suspect]
     Active Substance: RISANKIZUMAB-RZAA
     Indication: Crohn^s disease
     Dosage: THERAPY END DATE 2023
     Route: 042
     Dates: start: 20230304
  3. CEFDINIR [Concomitant]
     Active Substance: CEFDINIR
     Indication: Product used for unknown indication
     Route: 065

REACTIONS (17)
  - Nephrolithiasis [Recovering/Resolving]
  - Urinary tract infection [Recovering/Resolving]
  - Muscle spasms [Not Recovered/Not Resolved]
  - Hypovitaminosis [Not Recovered/Not Resolved]
  - Dehydration [Recovering/Resolving]
  - Crohn^s disease [Recovered/Resolved]
  - Drug ineffective [Not Recovered/Not Resolved]
  - Dehydration [Recovered/Resolved]
  - Sluggishness [Unknown]
  - Feeling abnormal [Unknown]
  - Diarrhoea [Not Recovered/Not Resolved]
  - Injection site haemorrhage [Recovered/Resolved]
  - Dehydration [Recovering/Resolving]
  - Crohn^s disease [Recovering/Resolving]
  - Mental disorder [Recovering/Resolving]
  - Injection site pain [Unknown]
  - Gastrointestinal pain [Recovering/Resolving]

NARRATIVE: CASE EVENT DATE: 20230101
